FAERS Safety Report 7889757-5 (Version None)
Quarter: 2011Q4

REPORT INFORMATION
  Report Type: 
  Country: None (occurrence: None)
  Receive Date: 20111103
  Receipt Date: 20111102
  Transmission Date: 20120403
  Serious: Yes (Hospitalization)
  Sender: FDA-Public Use
  Company Number: FR-SP-2011-08664

PATIENT
  Sex: Male

DRUGS (3)
  1. AVAMYS (FLUTICASONE) [Concomitant]
  2. IMMUCYST [Suspect]
     Indication: BLADDER CANCER
     Route: 043
     Dates: start: 20110712, end: 20110712
  3. XALATAN (LATANOPOST) [Concomitant]

REACTIONS (10)
  - VOMITING [None]
  - PRODUCTIVE COUGH [None]
  - CHILLS [None]
  - HYPERTHERMIA [None]
  - BOVINE TUBERCULOSIS [None]
  - WEIGHT DECREASED [None]
  - HYPERHIDROSIS [None]
  - MYALGIA [None]
  - PYREXIA [None]
  - COUGH [None]
